FAERS Safety Report 6268401-7 (Version None)
Quarter: 2009Q3

REPORT INFORMATION
  Report Type: 
  Country: None (occurrence: None)
  Receive Date: 20090715
  Receipt Date: 20090317
  Transmission Date: 20100115
  Serious: Yes (Other)
  Sender: FDA-Public Use
  Company Number: PHEH2009US07270

PATIENT
  Age: 33 Year
  Sex: Female

DRUGS (1)
  1. GLEEVEC [Suspect]
     Dosage: UNK

REACTIONS (8)
  - COLECTOMY [None]
  - DRUG INEFFECTIVE [None]
  - INFECTION [None]
  - LIVER TENDERNESS [None]
  - MALIGNANT NEOPLASM PROGRESSION [None]
  - POST PROCEDURAL COMPLICATION [None]
  - STAPHYLOCOCCAL INFECTION [None]
  - SURGERY [None]
